FAERS Safety Report 19035857 (Version 1)
Quarter: 2021Q1

REPORT INFORMATION
  Report Type: Spontaneous
  Country: GB (occurrence: GB)
  Receive Date: 20210321
  Receipt Date: 20210321
  Transmission Date: 20210420
  Serious: Yes (Other)
  Sender: FDA-Public Use
  Company Number: GB-TEVA-2021-GB-1890230

PATIENT
  Age: 23 Year
  Sex: Female
  Weight: 88.9 kg

DRUGS (2)
  1. VENLAFAXINE [Concomitant]
     Active Substance: VENLAFAXINE HYDROCHLORIDE
     Indication: ILL-DEFINED DISORDER
  2. ARIPIPRAZOL [Suspect]
     Active Substance: ARIPIPRAZOLE
     Indication: AFFECTIVE DISORDER
     Dosage: 10MG
     Route: 048
     Dates: start: 20210226, end: 20210226

REACTIONS (1)
  - Dystonia [Recovered/Resolved with Sequelae]

NARRATIVE: CASE EVENT DATE: 20210226
